FAERS Safety Report 8290314-X (Version None)
Quarter: 2012Q2

REPORT INFORMATION
  Report Type: 
  Country: None (occurrence: None)
  Receive Date: 20120417
  Receipt Date: 20120404
  Transmission Date: 20120825
  Serious: Yes (Death, Other)
  Sender: FDA-Public Use
  Company Number: JP-ROCHE-1057932

PATIENT
  Sex: Female

DRUGS (5)
  1. ACTEMRA [Suspect]
     Route: 041
     Dates: start: 20090602, end: 20090616
  2. ACTEMRA [Suspect]
     Route: 041
     Dates: start: 20090909
  3. ACTEMRA [Suspect]
     Route: 041
     Dates: start: 20090630, end: 20090714
  4. ACTEMRA [Suspect]
     Indication: JUVENILE ARTHRITIS
     Route: 041
     Dates: start: 20090421, end: 20090519
  5. ACTEMRA [Suspect]
     Route: 041
     Dates: start: 20090728, end: 20090826

REACTIONS (3)
  - DEVICE RELATED INFECTION [None]
  - PLEURAL EFFUSION [None]
  - HISTIOCYTOSIS HAEMATOPHAGIC [None]
